FAERS Safety Report 12673251 (Version 1)
Quarter: 2016Q3

REPORT INFORMATION
  Report Type: Spontaneous
  Country: US (occurrence: US)
  Receive Date: 20160822
  Receipt Date: 20160822
  Transmission Date: 20161109
  Serious: Yes (Other)
  Sender: FDA-Public Use
  Company Number: US-TAKEDA-2016TUS014579

PATIENT
  Age: 5 Decade
  Sex: Female

DRUGS (5)
  1. CLONAZEPAM. [Concomitant]
     Active Substance: CLONAZEPAM
     Dosage: 0.5 MG, QD
  2. TRINTELLIX [Suspect]
     Active Substance: VORTIOXETINE HYDROBROMIDE
     Indication: DEPRESSION
     Dosage: 10 MG, UNK
     Route: 065
  3. TOPAMAX [Suspect]
     Active Substance: TOPIRAMATE
     Indication: PRODUCT USED FOR UNKNOWN INDICATION
     Dosage: 25 MG, UNK
     Route: 065
  4. ARMOUR THYROID [Concomitant]
     Active Substance: THYROID, PORCINE
     Dosage: 90 MG, UNK
  5. LAMICTAL [Concomitant]
     Active Substance: LAMOTRIGINE
     Dosage: 150 MG, UNK

REACTIONS (1)
  - Seizure [Not Recovered/Not Resolved]
